FAERS Safety Report 4326517-6 (Version None)
Quarter: 2004Q1

REPORT INFORMATION
  Report Type: 
  Country: None (occurrence: None)
  Receive Date: 20040323
  Receipt Date: 20031201
  Transmission Date: 20041129
  Serious: Yes (Hospitalization)
  Sender: FDA-Public Use
  Company Number: 0300019EN0020P

PATIENT
  Age: 7 Year
  Sex: Female

DRUGS (1)
  1. ONCASPAR [Suspect]
     Indication: ACUTE LYMPHOCYTIC LEUKAEMIA
     Dosage: 4850 IU IV
     Route: 042
     Dates: start: 20031102, end: 20031108

REACTIONS (1)
  - CEREBRAL VENOUS THROMBOSIS [None]
